FAERS Safety Report 23607460 (Version 1)
Quarter: 2024Q1

REPORT INFORMATION
  Report Type: Spontaneous
  Country: EU (occurrence: EU)
  Receive Date: 20240307
  Receipt Date: 20240307
  Transmission Date: 20240410
  Serious: Yes (Life-Threatening)
  Sender: FDA-Public Use
  Company Number: None

PATIENT

DRUGS (5)
  1. BUPRENORPHINE HYDROCHLORIDE [Suspect]
     Active Substance: BUPRENORPHINE HYDROCHLORIDE
  2. ALPRAZOLAM [Suspect]
     Active Substance: ALPRAZOLAM
  3. LAMOTRIGINE [Suspect]
     Active Substance: LAMOTRIGINE
  4. CYAMEMAZINE [Suspect]
     Active Substance: CYAMEMAZINE
  5. COCAINE [Suspect]
     Active Substance: COCAINE
     Route: 042

REACTIONS (3)
  - Poisoning [Recovered/Resolved]
  - Drug abuse [Not Recovered/Not Resolved]
  - Coma [Recovered/Resolved]

NARRATIVE: CASE EVENT DATE: 20220718
